FAERS Safety Report 4280533-1 (Version None)
Quarter: 2004Q1

REPORT INFORMATION
  Report Type: 
  Country: None (occurrence: None)
  Receive Date: 20040127
  Receipt Date: 20040114
  Transmission Date: 20041129
  Serious: Yes (Hospitalization, Disabling)
  Sender: FDA-Public Use
  Company Number: 2002107138GB

PATIENT
  Age: 71 Year
  Sex: Female
  Weight: 29 kg

DRUGS (2)
  1. NICORETTE [Suspect]
     Indication: EX-SMOKER
     Dosage: 7-8 PIECES, QD, ORAL
     Route: 048
     Dates: start: 20010501
  2. TEMAZEPAM [Concomitant]

REACTIONS (7)
  - COLITIS [None]
  - COLITIS ULCERATIVE [None]
  - CONDITION AGGRAVATED [None]
  - FREQUENT BOWEL MOVEMENTS [None]
  - HAEMORRHOIDS [None]
  - PROCTOCOLITIS [None]
  - RECTAL HAEMORRHAGE [None]
